FAERS Safety Report 25407445 (Version 4)
Quarter: 2025Q3

REPORT INFORMATION
  Report Type: Spontaneous
  Country: GB (occurrence: GB)
  Receive Date: 20250606
  Receipt Date: 20250723
  Transmission Date: 20251021
  Serious: No
  Sender: PFIZER
  Company Number: GB-PFIZER INC-PV202500067046

PATIENT
  Age: 54 Year
  Sex: Female

DRUGS (1)
  1. ENBREL [Suspect]
     Active Substance: ETANERCEPT
     Indication: Psoriatic arthropathy
     Dosage: 50 MG, WEEKLY
     Route: 058
     Dates: start: 20250428

REACTIONS (5)
  - Injection site pain [Unknown]
  - Device malfunction [Unknown]
  - Product residue present [Unknown]
  - Accidental exposure to product [Unknown]
  - Exposure via skin contact [Unknown]
